FAERS Safety Report 8075270-1 (Version None)
Quarter: 2011Q4

REPORT INFORMATION
  Report Type: 
  Country: None (occurrence: None)
  Receive Date: 20111227
  Receipt Date: 20111107
  Transmission Date: 20120403
  Serious: No
  Sender: FDA-Public Use
  Company Number: PHEH2011US008928

PATIENT
  Age: 63 Year
  Sex: Female

DRUGS (2)
  1. BYSTOLIC [Concomitant]
  2. GILENYA [Suspect]
     Indication: MULTIPLE SCLEROSIS
     Dosage: 0.5 MG, QD
     Dates: start: 20111014, end: 20111020

REACTIONS (4)
  - ALTERED VISUAL DEPTH PERCEPTION [None]
  - RHINORRHOEA [None]
  - GAIT DISTURBANCE [None]
  - DIZZINESS [None]
